FAERS Safety Report 8294323-6 (Version None)
Quarter: 2012Q2

REPORT INFORMATION
  Report Type: 
  Country: None (occurrence: None)
  Receive Date: 20120413
  Receipt Date: 20120402
  Transmission Date: 20120825
  Serious: Yes (Hospitalization, Disabling)
  Sender: FDA-Public Use
  Company Number: 2012MA004390

PATIENT
  Age: 34 Year
  Sex: Female

DRUGS (3)
  1. QUETIAPINE FUMARATE [Suspect]
     Indication: SUICIDE ATTEMPT
  2. OXYCODONE AND ACETAMINOPHEN [Suspect]
     Indication: SUICIDE ATTEMPT
  3. CHLORAL HYDRATE [Suspect]
     Indication: SUICIDE ATTEMPT

REACTIONS (18)
  - QUADRIPLEGIA [None]
  - SUICIDE ATTEMPT [None]
  - ANAEMIA [None]
  - ELECTROCARDIOGRAM QT PROLONGED [None]
  - AUTONOMIC NERVOUS SYSTEM IMBALANCE [None]
  - MENTAL STATUS CHANGES [None]
  - LEUKOPENIA [None]
  - CERVICAL MYELOPATHY [None]
  - MULTI-ORGAN FAILURE [None]
  - MYELOPATHY [None]
  - OVERDOSE [None]
  - AREFLEXIA [None]
  - SKIN LESION [None]
  - RENAL FAILURE [None]
  - TRANSAMINASES INCREASED [None]
  - ANAL SPHINCTER ATONY [None]
  - EXTENSOR PLANTAR RESPONSE [None]
  - HEPATIC FUNCTION ABNORMAL [None]
